FAERS Safety Report 9769054 (Version 1)
Quarter: 2013Q4

REPORT INFORMATION
  Report Type: Spontaneous
  Country: US (occurrence: None)
  Receive Date: 20131217
  Receipt Date: 20131217
  Transmission Date: 20140711
  Serious: Yes (Other)
  Sender: FDA-Public Use
  Company Number: None

PATIENT
  Age: 49 Year
  Sex: Male
  Weight: 105.24 kg

DRUGS (1)
  1. XANAX [Suspect]
     Indication: ANXIETY

REACTIONS (2)
  - Restlessness [None]
  - Personality change [None]
